FAERS Safety Report 4727009-2 (Version None)
Quarter: 2005Q3

REPORT INFORMATION
  Report Type: 
  Country: None (occurrence: None)
  Receive Date: 20050726
  Receipt Date: 20050726
  Transmission Date: 20060218
  Serious: Yes (Life-Threatening)
  Sender: FDA-Public Use
  Company Number: None

PATIENT
  Age: 30 Year
  Sex: Female
  Weight: 72.5 kg

DRUGS (1)
  1. AMIODARONE 150 MG [Suspect]
     Indication: ATRIAL FIBRILLATION
     Dosage: 150 MG ONCE INTRAVENOU
     Route: 042
     Dates: start: 20050622, end: 20050622

REACTIONS (8)
  - CARDIAC ARREST [None]
  - CONVULSION [None]
  - HYPERTHYROIDISM [None]
  - HYPOTENSION [None]
  - HYPOXIC ENCEPHALOPATHY [None]
  - LOSS OF CONSCIOUSNESS [None]
  - RESPIRATORY ARREST [None]
  - THYROTOXIC CRISIS [None]
